FAERS Safety Report 4816170-7 (Version None)
Quarter: 2005Q4

REPORT INFORMATION
  Report Type: 
  Country: None (occurrence: None)
  Receive Date: 20051026
  Receipt Date: 20051014
  Transmission Date: 20060501
  Serious: Yes (Life-Threatening)
  Sender: FDA-Public Use
  Company Number: S05-CAN-03868-01

PATIENT
  Age: 78 Year
  Sex: Male

DRUGS (13)
  1. CELEXA [Suspect]
     Indication: DEPRESSION
     Dosage: 10 MG QD PO
     Route: 048
     Dates: start: 20050823, end: 20050825
  2. OLANZAPINE [Suspect]
     Dosage: 2.5 MG QHS PO
     Route: 048
     Dates: start: 20050823, end: 20050825
  3. CELECOXIB [Concomitant]
  4. CEFUROXIME [Concomitant]
  5. DIGOXINE (DIGOXIN) (DIGOXINE) [Concomitant]
  6. FUROSEMIDE [Concomitant]
  7. DOCUSATE SODIUM [Concomitant]
  8. SENNOSIDES (SENNOSIDE A+B CALCIUM) [Concomitant]
  9. METOPROLOL [Concomitant]
  10. POTASSIUM CHLORIDE [Concomitant]
  11. IPRATROPIUM/SALBUTAMOL [Concomitant]
  12. ACETAMINOPHEN (PARACETAMOL)(ACETAMINOPHEN) [Concomitant]
  13. SODIUM PHOSPHATE (SODIUM PHOSPHATE (32P)) [Concomitant]

REACTIONS (3)
  - HEPATIC FAILURE [None]
  - HYPOVOLAEMIC SHOCK [None]
  - RENAL FAILURE [None]
